FAERS Safety Report 12683599 (Version 1)
Quarter: 2016Q3

REPORT INFORMATION
  Report Type: Spontaneous
  Country: US (occurrence: None)
  Receive Date: 20160824
  Receipt Date: 20160824
  Transmission Date: 20161109
  Serious: Yes (Hospitalization)
  Sender: FDA-Public Use
  Company Number: None

PATIENT
  Age: 50 Year
  Sex: Female

DRUGS (1)
  1. TALTZ [Suspect]
     Active Substance: IXEKIZUMAB
     Indication: PSORIASIS
     Dosage: 80MG/ML Q 4 WEEKS SQ INJECTION
     Route: 058
     Dates: start: 20160811

REACTIONS (2)
  - Pustular psoriasis [None]
  - Skin disorder [None]

NARRATIVE: CASE EVENT DATE: 20160811
